FAERS Safety Report 21655930 (Version 1)
Quarter: 2022Q4

REPORT INFORMATION
  Report Type: Spontaneous
  Country: US (occurrence: None)
  Receive Date: 20221125
  Receipt Date: 20221125
  Transmission Date: 20230112
  Serious: Yes (Hospitalization)
  Sender: FDA-Public Use
  Company Number: None

PATIENT
  Sex: Female

DRUGS (31)
  1. HUMIRA [Suspect]
     Active Substance: ADALIMUMAB
     Indication: Psoriasis
     Dosage: 40MG/0.4ML  SUBCUTANEOSU?? ?INJECT 40 MG UNDER THE SKIN (SUBCUTANEOUS INJECTION) ONCE WEEKLY
     Route: 058
     Dates: start: 20210610
  2. ALFURIA [Concomitant]
  3. AMBIEN [Concomitant]
     Active Substance: ZOLPIDEM TARTRATE
  4. ARAVA [Concomitant]
     Active Substance: LEFLUNOMIDE
  5. CELEBREX [Concomitant]
     Active Substance: CELECOXIB
  6. FERRALET [Concomitant]
  7. ACETAMINOPHEN\HYDROCODONE [Concomitant]
     Active Substance: ACETAMINOPHEN\HYDROCODONE
  8. HYOMAX-FT [Concomitant]
  9. HYOSCYAMINE [Concomitant]
     Active Substance: HYOSCYAMINE
  10. KINERET [Concomitant]
     Active Substance: ANAKINRA
  11. LAMICTAL [Concomitant]
     Active Substance: LAMOTRIGINE
  12. LAMOTRIGINE [Concomitant]
     Active Substance: LAMOTRIGINE
  13. LEFLUNOMIDE [Concomitant]
     Active Substance: LEFLUNOMIDE
  14. LEVOTHYROXINE [Concomitant]
     Active Substance: LEVOTHYROXINE
  15. LITHIUM CARBONATE [Concomitant]
     Active Substance: LITHIUM CARBONATE
  16. LOVAZA [Concomitant]
     Active Substance: OMEGA-3-ACID ETHYL ESTERS
  17. LOW-OGESTREL [Concomitant]
     Active Substance: ETHINYL ESTRADIOL\NORGESTREL
  18. METHYLPREDNISOLONE [Concomitant]
     Active Substance: METHYLPREDNISOLONE
  19. METOPROL SUC [Concomitant]
  20. MIRALAX POW 3350 NF [Concomitant]
  21. MORPHINE SUL TAB [Concomitant]
  22. NITROGLYCER SUB [Concomitant]
  23. PRENATE DHA [Concomitant]
     Active Substance: .ALPHA.-TOCOPHEROL, DL-\ASCORBIC ACID\CALCIUM CARBONATE\CHOLECALCIFEROL\CYANOCOBALAMIN\DOCONEXENT\FE
  24. PROPO-N/APAP [Concomitant]
  25. SEROQUEL [Concomitant]
     Active Substance: QUETIAPINE FUMARATE
  26. SINGULAIR [Concomitant]
     Active Substance: MONTELUKAST SODIUM
  27. TEMAZEPAM [Concomitant]
     Active Substance: TEMAZEPAM
  28. TOPAMAX [Concomitant]
     Active Substance: TOPIRAMATE
  29. TRAMADOL HCL [Concomitant]
     Active Substance: TRAMADOL HYDROCHLORIDE
  30. VITAMIN D [Concomitant]
     Active Substance: VITAMIN D NOS
  31. TOPROL XL [Concomitant]
     Active Substance: METOPROLOL SUCCINATE

REACTIONS (1)
  - Surgery [None]
